FAERS Safety Report 5976896-9 (Version None)
Quarter: 2008Q4

REPORT INFORMATION
  Report Type: 
  Country: None (occurrence: None)
  Receive Date: 20081201
  Receipt Date: 20081201
  Transmission Date: 20090506
  Serious: Yes (Hospitalization)
  Sender: FDA-Public Use
  Company Number: None

PATIENT
  Sex: Female
  Weight: 68.0396 kg

DRUGS (1)
  1. LAMICTAL [Suspect]
     Dosage: BID ORAL
     Route: 048

REACTIONS (5)
  - ABDOMINAL PAIN UPPER [None]
  - AFFECTIVE DISORDER [None]
  - DRUG INEFFECTIVE [None]
  - MIGRAINE [None]
  - NAUSEA [None]
